FAERS Safety Report 7812214-9 (Version None)
Quarter: 2011Q4

REPORT INFORMATION
  Report Type: 
  Country: None (occurrence: None)
  Receive Date: 20111013
  Receipt Date: 20111005
  Transmission Date: 20120403
  Serious: Yes (Hospitalization)
  Sender: FDA-Public Use
  Company Number: GB-ELI_LILLY_AND_COMPANY-GB201109003487

PATIENT
  Age: 64 Year
  Sex: Male
  Weight: 110 kg

DRUGS (1)
  1. BYETTA [Suspect]
     Dosage: 5 UG, BID
     Route: 058
     Dates: start: 20110815, end: 20110818

REACTIONS (1)
  - PANCREATITIS [None]
